FAERS Safety Report 23992085 (Version 2)
Quarter: 2024Q4

REPORT INFORMATION
  Report Type: Spontaneous
  Country: CA (occurrence: CA)
  Receive Date: 20240620
  Receipt Date: 20241212
  Transmission Date: 20250114
  Serious: Yes (Other)
  Sender: ROCHE
  Company Number: CA-ROCHE-3580303

PATIENT
  Age: 14 Year
  Sex: Male

DRUGS (4)
  1. SOMATROPIN [Suspect]
     Active Substance: SOMATROPIN
     Indication: Growth hormone deficiency
     Route: 058
  2. SOMATROPIN [Suspect]
     Active Substance: SOMATROPIN
     Route: 058
  3. SOMATROPIN [Suspect]
     Active Substance: SOMATROPIN
     Indication: Growth hormone deficiency
     Route: 065
  4. SOMATROPIN [Suspect]
     Active Substance: SOMATROPIN
     Route: 065

REACTIONS (4)
  - Brain neoplasm malignant [Recovering/Resolving]
  - Product prescribing error [Unknown]
  - Recurrent cancer [Recovering/Resolving]
  - Second primary malignancy [Recovering/Resolving]
